FAERS Safety Report 6752262-3 (Version None)
Quarter: 2010Q2

REPORT INFORMATION
  Report Type: 
  Country: None (occurrence: None)
  Receive Date: 20100602
  Receipt Date: 20100521
  Transmission Date: 20101027
  Serious: Yes (Other)
  Sender: FDA-Public Use
  Company Number: US-PFIZER INC-2010064319

PATIENT
  Age: 10 Year
  Sex: Male

DRUGS (4)
  1. VORICONAZOLE [Suspect]
     Indication: CHRONIC GRANULOMATOUS DISEASE
     Dosage: UNK
     Route: 048
  2. VORICONAZOLE [Suspect]
     Indication: PYREXIA
     Dosage: UNK
     Route: 048
  3. SULFAMETHOXAZOLE AND TRIMETHOPRIM [Concomitant]
     Indication: CHRONIC GRANULOMATOUS DISEASE
     Dosage: UNK
  4. INTERFERON GAMMA-1B [Concomitant]
     Indication: CHRONIC GRANULOMATOUS DISEASE
     Dosage: UNK

REACTIONS (2)
  - PHOTODERMATOSIS [None]
  - PHOTOSENSITIVITY REACTION [None]
